FAERS Safety Report 4425008-1 (Version None)
Quarter: 2004Q3

REPORT INFORMATION
  Report Type: 
  Country: None (occurrence: None)
  Receive Date: 20040813
  Receipt Date: 20040802
  Transmission Date: 20050211
  Serious: Yes (Other)
  Sender: FDA-Public Use
  Company Number: BE-JNJFOC-20040801055

PATIENT
  Age: 3 Year
  Sex: Female

DRUGS (1)
  1. PROPULSID [Suspect]
     Route: 049
     Dates: start: 20040528, end: 20040704

REACTIONS (3)
  - DECREASED APPETITE [None]
  - POLLAKIURIA [None]
  - URTICARIA [None]
